FAERS Safety Report 8077237-6 (Version None)
Quarter: 2012Q1

REPORT INFORMATION
  Report Type: 
  Country: None (occurrence: None)
  Receive Date: 20120127
  Receipt Date: 20120123
  Transmission Date: 20120608
  Serious: Yes (Death, Other)
  Sender: FDA-Public Use
  Company Number: TR-PFIZER INC-2012018278

PATIENT
  Age: 7 Month

DRUGS (1)
  1. SILDENAFIL CITRATE [Suspect]
     Dosage: UNK

REACTIONS (3)
  - HYPOTENSION [None]
  - HYPOXIA [None]
  - PULMONARY HYPERTENSIVE CRISIS [None]
